FAERS Safety Report 21871608 (Version 1)
Quarter: 2023Q1

REPORT INFORMATION
  Report Type: Spontaneous
  Country: IT (occurrence: IT)
  Receive Date: 20230117
  Receipt Date: 20230117
  Transmission Date: 20230418
  Serious: Yes (Other)
  Sender: FDA-Public Use
  Company Number: None

PATIENT
  Age: 49 Year
  Sex: Female

DRUGS (3)
  1. VINCRISTINE [Suspect]
     Active Substance: VINCRISTINE
     Indication: Oligodendroglioma
     Dates: start: 20210615, end: 202201
  2. LOMUSTINE [Suspect]
     Active Substance: LOMUSTINE
     Indication: Oligodendroglioma
     Dates: start: 20210615, end: 202203
  3. PROCARBAZINE [Suspect]
     Active Substance: PROCARBAZINE
     Indication: Oligodendroglioma
     Dates: start: 20210615, end: 202201

REACTIONS (1)
  - Haematotoxicity [Recovered/Resolved]

NARRATIVE: CASE EVENT DATE: 20220304
